FAERS Safety Report 25462290 (Version 2)
Quarter: 2025Q3

REPORT INFORMATION
  Report Type: Spontaneous
  Country: US (occurrence: US)
  Receive Date: 20250620
  Receipt Date: 20250708
  Transmission Date: 20251021
  Serious: No
  Sender: PFIZER
  Company Number: US-PFIZER INC-202500121105

PATIENT
  Age: 83 Year
  Sex: Female
  Weight: 79.38 kg

DRUGS (1)
  1. GENOTROPIN [Suspect]
     Active Substance: SOMATROPIN
     Indication: Immune system disorder
     Dosage: 0.4 MG, 1X/DAY, NOT YET STARTED

REACTIONS (2)
  - Product knowledge deficit [Unknown]
  - Off label use [Unknown]
